FAERS Safety Report 24974948 (Version 1)
Quarter: 2025Q1

REPORT INFORMATION
  Report Type: Spontaneous
  Country: US (occurrence: US)
  Receive Date: 20250217
  Receipt Date: 20250217
  Transmission Date: 20250409
  Serious: No
  Sender: ROCHE
  Company Number: US-ROCHE-10000204242

PATIENT
  Age: 80 Year
  Sex: Female
  Weight: 80.92 kg

DRUGS (1)
  1. ACTEMRA ACTPEN [Suspect]
     Active Substance: TOCILIZUMAB
     Indication: Giant cell arteritis
     Dosage: STRENGTH: 162MG/0.9ML, ONGOING
     Route: 058
     Dates: start: 202401

REACTIONS (4)
  - Device malfunction [Unknown]
  - Medication error [Unknown]
  - Wrong technique in device usage process [Unknown]
  - Feeling abnormal [Unknown]

NARRATIVE: CASE EVENT DATE: 20250205
